FAERS Safety Report 12712427 (Version 2)
Quarter: 2016Q3

REPORT INFORMATION
  Report Type: Spontaneous
  Country: RO (occurrence: RO)
  Receive Date: 20160902
  Receipt Date: 20160912
  Transmission Date: 20161109
  Serious: Yes (Hospitalization)
  Sender: FDA-Public Use
  Company Number: RO-UCBSA-2015026926

PATIENT
  Age: 63 Year
  Sex: Female

DRUGS (7)
  1. ALINDOR [Concomitant]
     Indication: KERATOSIS FOLLICULAR
     Dosage: UNK
  2. XYZAL [Suspect]
     Active Substance: LEVOCETIRIZINE DIHYDROCHLORIDE
     Indication: KERATOSIS FOLLICULAR
     Dosage: UNK
  3. RETINOIC ACID [Concomitant]
     Active Substance: TRETINOIN
  4. PIROXICAM. [Concomitant]
     Active Substance: PIROXICAM
     Indication: KERATOSIS FOLLICULAR
     Dosage: UNK
  5. NEOTIGASON [Concomitant]
     Active Substance: ACITRETIN
     Indication: KERATOSIS FOLLICULAR
     Dosage: 10 MG CAPSULES (0.5MG/KG/DAY)
  6. BETAMETHASONE DIPROPIONATE. [Concomitant]
     Active Substance: BETAMETHASONE DIPROPIONATE
     Indication: KERATOSIS FOLLICULAR
     Dosage: UNK
  7. XYZAL [Suspect]
     Active Substance: LEVOCETIRIZINE DIHYDROCHLORIDE
     Indication: OFF LABEL USE

REACTIONS (2)
  - Respiratory tract infection viral [Recovered/Resolved]
  - Off label use [Unknown]
